FAERS Safety Report 20744833 (Version 1)
Quarter: 2022Q2

REPORT INFORMATION
  Report Type: Spontaneous
  Country: CN (occurrence: CN)
  Receive Date: 20220425
  Receipt Date: 20220425
  Transmission Date: 20220721
  Serious: Yes (Other)
  Sender: FDA-Public Use
  Company Number: CN-PFIZER INC-202200582579

PATIENT
  Age: 96 Year
  Sex: Female

DRUGS (5)
  1. ATORVASTATIN CALCIUM [Suspect]
     Active Substance: ATORVASTATIN CALCIUM
     Dosage: 20 MG, 1X/DAY QN
     Route: 048
     Dates: start: 20220314
  2. RIVAROXABAN [Concomitant]
     Active Substance: RIVAROXABAN
     Dosage: 10 MG, 1X/DAY
     Route: 048
     Dates: start: 20220314
  3. FU FANG DAN SHEN [BORNEOL;PANAX NOTOGINSENG ROOT;SALVIA MILTIORRHIZA R [Concomitant]
     Dosage: 10 DF, 3X/DAY
     Route: 048
     Dates: start: 20220314
  4. SODIUM BICARBONATE [Concomitant]
     Active Substance: SODIUM BICARBONATE
     Dosage: 1 G, 3X/DAY
     Route: 048
     Dates: start: 20220314
  5. NIMODIPINE [Concomitant]
     Active Substance: NIMODIPINE
     Dosage: 20 MG, 3X/DAY
     Route: 048
     Dates: start: 20220314

REACTIONS (5)
  - Pneumonia [Unknown]
  - Productive cough [Unknown]
  - Chills [Unknown]
  - Pyrexia [Unknown]
  - Oxygen saturation decreased [Unknown]

NARRATIVE: CASE EVENT DATE: 20220301
